FAERS Safety Report 9305112 (Version 3)
Quarter: 2013Q2

REPORT INFORMATION
  Report Type: Spontaneous
  Country: CA (occurrence: None)
  Receive Date: 20130520
  Receipt Date: 20130604
  Transmission Date: 20140414
  Serious: Yes (Hospitalization, Other)
  Sender: FDA-Public Use
  Company Number: AUR-APL-2013-03984

PATIENT
  Age: 68 Year
  Sex: Male
  Weight: 80 kg

DRUGS (8)
  1. AMLODIPINE [Suspect]
     Indication: PRODUCT USED FOR UNKNOWN INDICATION
     Dosage: 30 DOSAGE FORMS, UNKNOWN
  2. METFORMIN [Suspect]
     Indication: PRODUCT USED FOR UNKNOWN INDICATION
     Dosage: 7 DISAGE FORMS, UNKNOWN
  3. ACETYLSALICYLIC ACID (ACETYLSALICYLIC ACID) [Concomitant]
  4. CLONAZEPAM (CLONAZEPAM) (CLONAZEPAM) [Concomitant]
  5. GLYBURIDE (GLIBENCLAMIDE) [Concomitant]
  6. IRBESARTAN (IRBESARTAN) [Concomitant]
  7. TAMSULOSIN (TAMSULOSIN) [Concomitant]
  8. VITAMIN B12 (CYANOCOBALAMIN) [Concomitant]

REACTIONS (13)
  - Overdose [None]
  - Metabolic acidosis [None]
  - Haemodynamic instability [None]
  - Toxicity to various agents [None]
  - Suicide attempt [None]
  - Intentional overdose [None]
  - Blood creatine phosphokinase increased [None]
  - Blood sodium decreased [None]
  - Blood lactic acid increased [None]
  - Anion gap increased [None]
  - Shock [None]
  - Hyperglycaemia [None]
  - Oliguria [None]
